FAERS Safety Report 9072981 (Version 1)
Quarter: 2013Q1

REPORT INFORMATION
  Report Type: Report from Study
  Country: US (occurrence: US)
  Receive Date: 20130128
  Receipt Date: 20130128
  Transmission Date: 20140127
  Serious: No
  Sender: FDA-Public Use
  Company Number: US-ABBOTT-12P-163-0916081-00

PATIENT
  Age: 64 Year
  Sex: Male

DRUGS (10)
  1. HUMIRA 40 MG/0.8 ML PEN [Suspect]
     Indication: PAIN
     Dates: start: 20120215
  2. HUMIRA 40 MG/0.8 ML PEN [Suspect]
     Indication: MUSCULOSKELETAL STIFFNESS
  3. LISINOPRIL [Concomitant]
     Indication: HYPERTENSION
     Dosage: 40 MG, 1/2 TAB DAILY
  4. ONE A DAY [Concomitant]
     Indication: VITAMIN SUPPLEMENTATION
     Dosage: DAILY
  5. GABAPENTIN [Concomitant]
     Indication: PARAESTHESIA
     Dosage: 300 MG X 2-3 TIMES DAILY
  6. GABAPENTIN [Concomitant]
     Indication: PAIN
  7. TERAZOSIN HCL [Concomitant]
     Indication: PROSTATIC DISORDER
     Dosage: AT BEDTIME
  8. FINASTERIDE [Concomitant]
     Indication: PROSTATIC DISORDER
     Dosage: AT BEDTIME
  9. COLESTIPOL HCL [Concomitant]
     Indication: BLOOD CHOLESTEROL INCREASED
     Dosage: 1 GM X 2 TABS DAILY
  10. ALEVE OTC [Concomitant]
     Indication: PAIN
     Dosage: 2 TABS IN AM AND 1 TAB AT BEDTIME

REACTIONS (1)
  - Precancerous skin lesion [Recovering/Resolving]
